FAERS Safety Report 13221104 (Version 1)
Quarter: 2017Q1

REPORT INFORMATION
  Report Type: Spontaneous
  Country: US (occurrence: US)
  Receive Date: 20170211
  Receipt Date: 20170211
  Transmission Date: 20170428
  Serious: No
  Sender: FDA-Public Use
  Company Number: US-ACORDA-ACO_130253_2016

PATIENT
  Age: 74 Year
  Sex: Female
  Weight: 59.41 kg

DRUGS (3)
  1. AMPYRA [Suspect]
     Active Substance: DALFAMPRIDINE
     Indication: GAIT DISTURBANCE
     Dosage: 10 MG, BID
     Route: 048
     Dates: start: 20161030, end: 20161030
  2. THYROID COMPOUND [Concomitant]
     Indication: PRODUCT USED FOR UNKNOWN INDICATION
     Dosage: UNK
     Route: 065
  3. NALTREXONE [Concomitant]
     Active Substance: NALTREXONE
     Indication: PRODUCT USED FOR UNKNOWN INDICATION
     Dosage: 4.5 MG, UNK
     Route: 065

REACTIONS (3)
  - Burning sensation [Recovered/Resolved]
  - Balance disorder [Recovered/Resolved]
  - Genital burning sensation [Recovered/Resolved]

NARRATIVE: CASE EVENT DATE: 20161030
